FAERS Safety Report 24172170 (Version 1)
Quarter: 2024Q3

REPORT INFORMATION
  Report Type: Report from Study
  Country: US (occurrence: US)
  Receive Date: 20240805
  Receipt Date: 20240805
  Transmission Date: 20241016
  Serious: Yes (Other)
  Sender: INSMED
  Company Number: US-INSMED, INC.-2024-03034-US

PATIENT
  Sex: Male

DRUGS (1)
  1. ARIKAYCE [Suspect]
     Active Substance: AMIKACIN
     Indication: Infection
     Dosage: 590 MILLIGRAM, QD
     Route: 055
     Dates: start: 202308, end: 2024

REACTIONS (2)
  - Haemorrhage [Unknown]
  - Haemoptysis [Unknown]
